FAERS Safety Report 22950607 (Version 3)
Quarter: 2024Q3

REPORT INFORMATION
  Report Type: Report from Study
  Country: US (occurrence: US)
  Receive Date: 20230915
  Receipt Date: 20240826
  Transmission Date: 20241016
  Serious: No
  Sender: GLAXOSMITHKLINE
  Company Number: US-MMM-DGHA0SYT

PATIENT
  Sex: Female

DRUGS (3)
  1. BELIMUMAB [Suspect]
     Active Substance: BELIMUMAB
     Indication: Product used for unknown indication
     Dosage: UNK
  2. BELIMUMAB [Suspect]
     Active Substance: BELIMUMAB
  3. BELIMUMAB [Suspect]
     Active Substance: BELIMUMAB
     Indication: Systemic lupus erythematosus
     Dosage: 200 MG/ML
     Dates: start: 20230104

REACTIONS (8)
  - Migraine [Unknown]
  - Illness [Unknown]
  - Rash [Unknown]
  - Contusion [Not Recovered/Not Resolved]
  - Musculoskeletal disorder [Unknown]
  - COVID-19 [Unknown]
  - Bedridden [Unknown]
  - Performance status decreased [Unknown]
